FAERS Safety Report 18659094 (Version 1)
Quarter: 2020Q4

REPORT INFORMATION
  Report Type: Spontaneous
  Country: TR (occurrence: TR)
  Receive Date: 20201223
  Receipt Date: 20201223
  Transmission Date: 20210114
  Serious: Yes (Other)
  Sender: FDA-Public Use
  Company Number: TR-PURDUE-USA-2020-0192326

PATIENT
  Age: 7 Year
  Sex: Female

DRUGS (1)
  1. NON-PMN METHYLPHENIDATE HYDROCHLORIDE [Suspect]
     Active Substance: METHYLPHENIDATE HYDROCHLORIDE
     Indication: ATTENTION DEFICIT HYPERACTIVITY DISORDER
     Dosage: 0.5 MG/KG/DOSE THREE TIMES A DAY, MAXIMUM 60MG
     Route: 065

REACTIONS (1)
  - Precocious puberty [Unknown]
